FAERS Safety Report 12647797 (Version 2)
Quarter: 2016Q3

REPORT INFORMATION
  Report Type: Spontaneous
  Country: CH (occurrence: CH)
  Receive Date: 20160812
  Receipt Date: 20160824
  Transmission Date: 20161109
  Serious: Yes (Other)
  Sender: FDA-Public Use
  Company Number: CH-PFIZER INC-2016377225

PATIENT
  Age: 1 Day
  Sex: Male
  Weight: 4.5 kg

DRUGS (4)
  1. SERTRALINE HCL [Suspect]
     Active Substance: SERTRALINE HYDROCHLORIDE
     Indication: GENERALISED ANXIETY DISORDER
     Dosage: 300 MG, 1X/DAY
     Route: 064
  2. SERTRALINE HCL [Suspect]
     Active Substance: SERTRALINE HYDROCHLORIDE
     Dosage: 150 MG  1X/DAY
     Route: 064
  3. TEMESTA [Suspect]
     Active Substance: LORAZEPAM
     Indication: DEPRESSION
     Dosage: 1 MG, ALTERNATE DAY (APPROXIMATELY)
     Route: 064
  4. TEMESTA [Suspect]
     Active Substance: LORAZEPAM
     Indication: GENERALISED ANXIETY DISORDER

REACTIONS (11)
  - Foetal macrosomia [Unknown]
  - Conjunctivitis [Unknown]
  - Drug withdrawal syndrome neonatal [Recovered/Resolved]
  - Lenticulostriatal vasculopathy [Unknown]
  - Neonatal respiratory distress syndrome [Recovered/Resolved]
  - Maternal exposure during pregnancy [Recovered/Resolved]
  - Prescribed overdose [Recovered/Resolved]
  - Loss of consciousness [Recovered/Resolved]
  - Hiccups [Recovered/Resolved]
  - Neonatal behavioural syndrome [Recovered/Resolved]
  - Hypoglycaemia neonatal [Recovered/Resolved]

NARRATIVE: CASE EVENT DATE: 2004
